FAERS Safety Report 17547133 (Version 3)
Quarter: 2020Q2

REPORT INFORMATION
  Report Type: Report from Study
  Country: CA (occurrence: CA)
  Receive Date: 20200316
  Receipt Date: 20200406
  Transmission Date: 20200713
  Serious: Yes (Hospitalization)
  Sender: FDA-Public Use
  Company Number: CA-ACTELION-A-US2020-200321

PATIENT
  Age: 59 Year
  Sex: Female

DRUGS (24)
  1. UPTRAVI [Suspect]
     Active Substance: SELEXIPAG
     Indication: PULMONARY ARTERIAL HYPERTENSION
     Dosage: 400 MCG, BID
     Route: 048
     Dates: start: 20191217, end: 201912
  2. ADCIRCA [Concomitant]
     Active Substance: TADALAFIL
  3. PERCOCET [Concomitant]
     Active Substance: ACETAMINOPHEN\OXYCODONE HYDROCHLORIDE
     Dosage: UNK, PRN
  4. UPTRAVI [Suspect]
     Active Substance: SELEXIPAG
     Dosage: 1200 MCG, BID
     Route: 048
  5. PREGABALIN. [Concomitant]
     Active Substance: PREGABALIN
  6. UPTRAVI [Suspect]
     Active Substance: SELEXIPAG
     Dosage: UNK MCG, BID
     Route: 048
     Dates: end: 20191217
  7. CARIPUL [Suspect]
     Active Substance: EPOPROSTENOL
     Indication: PULMONARY ARTERIAL HYPERTENSION
     Route: 042
  8. XARELTO [Concomitant]
     Active Substance: RIVAROXABAN
  9. METOPROLOL. [Concomitant]
     Active Substance: METOPROLOL
  10. ROSUVASTATIN. [Concomitant]
     Active Substance: ROSUVASTATIN
  11. VENTOLIN [Concomitant]
     Active Substance: ALBUTEROL SULFATE
  12. UPTRAVI [Suspect]
     Active Substance: SELEXIPAG
     Dosage: 200 MCG, BID
     Route: 048
     Dates: end: 20191230
  13. TRACLEER [Suspect]
     Active Substance: BOSENTAN
     Indication: PULMONARY ARTERIAL HYPERTENSION
     Dosage: 125 MG
     Route: 048
     Dates: start: 20190801
  14. FUROSEMIDE. [Concomitant]
     Active Substance: FUROSEMIDE
  15. SYMBICORT [Concomitant]
     Active Substance: BUDESONIDE\FORMOTEROL FUMARATE DIHYDRATE
  16. AVENTYL [Concomitant]
     Active Substance: NORTRIPTYLINE HYDROCHLORIDE
  17. SEMAGLUTIDE [Concomitant]
     Active Substance: SEMAGLUTIDE
  18. INSULIN GLARGINE [Concomitant]
     Active Substance: INSULIN GLARGINE
  19. FENOFIBRATE. [Concomitant]
     Active Substance: FENOFIBRATE
  20. PANTOPRAZOLE [Concomitant]
     Active Substance: PANTOPRAZOLE
  21. LEVOTHYROXINE. [Concomitant]
     Active Substance: LEVOTHYROXINE
  22. INSULIN ASPART [Concomitant]
     Active Substance: INSULIN ASPART
  23. UPTRAVI [Suspect]
     Active Substance: SELEXIPAG
     Dosage: 1000 MCG
     Route: 048
  24. ALLOPURINOL. [Concomitant]
     Active Substance: ALLOPURINOL

REACTIONS (6)
  - Headache [Recovered/Resolved]
  - Pain in extremity [Unknown]
  - Malaise [Recovered/Resolved]
  - Hypotension [Unknown]
  - Hospitalisation [Unknown]
  - Abdominal pain upper [Recovered/Resolved]

NARRATIVE: CASE EVENT DATE: 20191224
